FAERS Safety Report 9130954 (Version 2)
Quarter: 2013Q1

REPORT INFORMATION
  Report Type: Spontaneous
  Country: NO (occurrence: NO)
  Receive Date: 20130301
  Receipt Date: 20130306
  Transmission Date: 20140127
  Serious: Yes (Other)
  Sender: FDA-Public Use
  Company Number: NO-JNJFOC-20130212887

PATIENT
  Sex: 0

DRUGS (9)
  1. DOXORUBICIN [Suspect]
     Indication: NON-HODGKIN^S LYMPHOMA
     Route: 042
  2. ETOPOSIDE [Suspect]
     Indication: NON-HODGKIN^S LYMPHOMA
     Route: 042
  3. VINCRISTINE [Suspect]
     Indication: NON-HODGKIN^S LYMPHOMA
     Route: 042
  4. FLUDARABINE [Suspect]
     Indication: NON-HODGKIN^S LYMPHOMA
     Route: 042
  5. PREDNISOLONE [Suspect]
     Indication: NON-HODGKIN^S LYMPHOMA
     Dosage: ON DAYS 1 TO 5
     Route: 048
  6. CICLOSPORIN [Suspect]
     Indication: NON-HODGKIN^S LYMPHOMA
     Dosage: ON DAY 5
     Route: 042
  7. RITUXIMAB [Suspect]
     Indication: NON-HODGKIN^S LYMPHOMA
     Dosage: ON DAY 2
     Route: 065
  8. SIROLIMUS [Suspect]
     Indication: NON-HODGKIN^S LYMPHOMA
     Dosage: 12 MG ON DAY 2 AND THEN 4 MG DAILY FOR 3 ORE DAYS
     Route: 048
  9. PEGFILGRASTIM [Suspect]
     Indication: NON-HODGKIN^S LYMPHOMA
     Dosage: ON DAY 6
     Route: 058

REACTIONS (5)
  - Neutropenia [Unknown]
  - Condition aggravated [Unknown]
  - Neutropenia [Unknown]
  - Thrombocytopenia [Unknown]
  - Infection [Recovered/Resolved]
